FAERS Safety Report 21989443 (Version 5)
Quarter: 2024Q2

REPORT INFORMATION
  Report Type: Report from Study
  Country: US (occurrence: US)
  Receive Date: 20230214
  Receipt Date: 20240408
  Transmission Date: 20240716
  Serious: Yes (Hospitalization, Other)
  Sender: FDA-Public Use
  Company Number: US-MYLANLABS-2023M1016087

PATIENT
  Age: 76 Year
  Sex: Female
  Weight: 70.5 kg

DRUGS (4)
  1. AMLODIPINE [Suspect]
     Active Substance: AMLODIPINE BESYLATE
     Indication: Hypertension
     Dosage: 5 MILLIGRAM, QD
     Route: 048
     Dates: start: 20150101
  2. INFLUENZA VIRUS VACCINE [Suspect]
     Active Substance: INFLUENZA VIRUS VACCINE
     Indication: Immunisation
     Dosage: 1 DOSAGE FORM
     Route: 030
     Dates: start: 20230124, end: 20230124
  3. SIMVASTATIN [Concomitant]
     Active Substance: SIMVASTATIN
     Dosage: UNK
     Route: 065
     Dates: start: 2015
  4. GLIPIZIDE [Concomitant]
     Active Substance: GLIPIZIDE
     Dosage: UNK
     Route: 065
     Dates: start: 2015

REACTIONS (9)
  - Hypertension [Recovered/Resolved]
  - Cardiac failure congestive [Recovered/Resolved]
  - Coronary artery disease [Recovered/Resolved]
  - Ventricular extrasystoles [Recovered/Resolved]
  - Aortic arteriosclerosis [Recovered/Resolved]
  - Cholelithiasis [Recovered/Resolved]
  - Anxiety [Recovered/Resolved]
  - Pulmonary mass [Recovered/Resolved]
  - Diastolic dysfunction [Unknown]

NARRATIVE: CASE EVENT DATE: 20230128
